FAERS Safety Report 6095699-0 (Version None)
Quarter: 2009Q1

REPORT INFORMATION
  Report Type: 
  Country: None (occurrence: None)
  Receive Date: 20090227
  Receipt Date: 20080527
  Transmission Date: 20090719
  Serious: No
  Sender: FDA-Public Use
  Company Number: A0729646A

PATIENT
  Age: 45 Year
  Sex: Female

DRUGS (5)
  1. LAMICTAL [Suspect]
     Indication: DRUG USE FOR UNKNOWN INDICATION
     Dosage: 25MG TWICE PER DAY
     Route: 048
     Dates: start: 20070401
  2. ABILIFY [Concomitant]
  3. DIPHENHYDRAMINE HCL [Concomitant]
  4. SERTRALINE [Concomitant]
  5. TRAZODONE HCL [Concomitant]

REACTIONS (2)
  - AMPHETAMINES POSITIVE [None]
  - RASH [None]
